FAERS Safety Report 9745692 (Version 1)
Quarter: 2013Q4

REPORT INFORMATION
  Report Type: Spontaneous
  Country: US (occurrence: None)
  Receive Date: 20131206
  Receipt Date: 20131206
  Transmission Date: 20140711
  Serious: No
  Sender: FDA-Public Use
  Company Number: None

PATIENT
  Sex: Male
  Weight: 65.5 kg

DRUGS (1)
  1. DEPAKOTE [Suspect]
     Indication: CONVULSION
     Dosage: 250MG 1 Q AM, 2 Q HS, ORALLY
     Route: 048
     Dates: start: 20130313

REACTIONS (2)
  - Abnormal behaviour [None]
  - Feeling abnormal [None]
